FAERS Safety Report 4625882-X (Version None)
Quarter: 2005Q1

REPORT INFORMATION
  Report Type: 
  Country: None (occurrence: None)
  Receive Date: 20050330
  Receipt Date: 20050317
  Transmission Date: 20050727
  Serious: Yes (Hospitalization)
  Sender: FDA-Public Use
  Company Number: 2005046094

PATIENT
  Age: 10 Year
  Sex: Male

DRUGS (5)
  1. AZITHROMYCIN [Suspect]
     Indication: RESPIRATORY DISTRESS
     Dosage: ORAL
     Route: 048
  2. ALBUTEROL SULFATE HFA [Suspect]
     Indication: COUGH
     Dosage: (2.5 MG, ONCE), INHALATION
     Route: 055
  3. CEFTRIAXONE [Suspect]
     Indication: RESPIRATORY DISTRESS
     Dosage: INTRAVENOUS
     Route: 042
  4. VANCOMYCIN [Suspect]
     Indication: RESPIRATORY DISTRESS
     Dosage: INTRAVENOUS
     Route: 042
  5. CEFUROXIME AXETIL [Suspect]
     Indication: RESPIRATORY DISTRESS
     Dosage: ORAL
     Route: 048

REACTIONS (15)
  - BLOOD CREATINE PHOSPHOKINASE MB INCREASED [None]
  - CARDIAC OUTPUT DECREASED [None]
  - CARDIOGENIC SHOCK [None]
  - COMA [None]
  - COUGH [None]
  - ELECTROCARDIOGRAM ST SEGMENT DEPRESSION [None]
  - ELECTROCARDIOGRAM T WAVE INVERSION [None]
  - HAEMOLYTIC ANAEMIA [None]
  - MYOCARDIAL ISCHAEMIA [None]
  - PALLOR [None]
  - PERIPHERAL COLDNESS [None]
  - POOR PERIPHERAL CIRCULATION [None]
  - RESPIRATORY DISTRESS [None]
  - SINUS TACHYCARDIA [None]
  - TROPONIN I INCREASED [None]
